FAERS Safety Report 7605046-8 (Version None)
Quarter: 2011Q3

REPORT INFORMATION
  Report Type: 
  Country: None (occurrence: None)
  Receive Date: 20110713
  Receipt Date: 20110706
  Transmission Date: 20111222
  Serious: Yes (Other)
  Sender: FDA-Public Use
  Company Number: MX-BRISTOL-MYERS SQUIBB COMPANY-15882723

PATIENT
  Age: 38 Year
  Sex: Male

DRUGS (2)
  1. REYATAZ [Suspect]
     Indication: HIV INFECTION
     Dates: start: 20100101
  2. TRUVADA [Suspect]
     Indication: HIV INFECTION
     Dates: start: 20100101

REACTIONS (3)
  - JAUNDICE [None]
  - NORMOCHROMIC NORMOCYTIC ANAEMIA [None]
  - THROMBOCYTOPENIA [None]
